FAERS Safety Report 7547421-6 (Version None)
Quarter: 2011Q2

REPORT INFORMATION
  Report Type: 
  Country: None (occurrence: None)
  Receive Date: 20110614
  Receipt Date: 20110608
  Transmission Date: 20111010
  Serious: Yes (Other)
  Sender: FDA-Public Use
  Company Number: IT-BAXTER-2011BH018825

PATIENT
  Age: 13 Year
  Sex: Female

DRUGS (1)
  1. SEVOFLURANE [Suspect]
     Indication: GENERAL ANAESTHESIA
     Route: 055

REACTIONS (3)
  - HYPOTENSION [None]
  - SPINAL CORD ISCHAEMIA [None]
  - PARAPARESIS [None]
